FAERS Safety Report 25181727 (Version 2)
Quarter: 2025Q2

REPORT INFORMATION
  Report Type: Spontaneous
  Country: JP (occurrence: JP)
  Receive Date: 20250410
  Receipt Date: 20250509
  Transmission Date: 20250717
  Serious: Yes (Death)
  Sender: MERCK SHARP & DOHME LLC
  Company Number: JP-009507513-2274746

PATIENT
  Age: 57 Year
  Sex: Female

DRUGS (3)
  1. PEMBROLIZUMAB [Suspect]
     Active Substance: PEMBROLIZUMAB
     Indication: Cervix carcinoma stage III
     Route: 065
  2. TAXOTERE [Concomitant]
     Active Substance: DOCETAXEL
     Indication: Cervix carcinoma stage III
  3. BEV [Concomitant]
     Indication: Cervix carcinoma stage III

REACTIONS (2)
  - Malignant neoplasm progression [Fatal]
  - Anaemia [Unknown]
